FAERS Safety Report 14333894 (Version 1)
Quarter: 2017Q4

REPORT INFORMATION
  Report Type: Report from Study
  Country: US (occurrence: US)
  Receive Date: 20171228
  Receipt Date: 20171228
  Transmission Date: 20180321
  Serious: Yes (Other)
  Sender: FDA-Public Use
  Company Number: US-PFIZER INC-2017545971

PATIENT

DRUGS (3)
  1. CARBOPLATIN. [Suspect]
     Active Substance: CARBOPLATIN
     Dosage: AUC5 (DAY 1)
  2. PACLITAXEL. [Suspect]
     Active Substance: PACLITAXEL
     Dosage: 80 MG/M2, CYCLIC (DAYS 1, 8, 15)
  3. SELINEXOR [Suspect]
     Active Substance: SELINEXOR
     Dosage: 30 MG/M2, CYCLIC (DAYS 1, 4, 8, 11, 15, 18)
     Route: 048

REACTIONS (1)
  - Syncope [Unknown]
